FAERS Safety Report 17084153 (Version 1)
Quarter: 2019Q4

REPORT INFORMATION
  Report Type: Spontaneous
  Country: TW (occurrence: TW)
  Receive Date: 20191127
  Receipt Date: 20191127
  Transmission Date: 20200122
  Serious: Yes (Other)
  Sender: FDA-Public Use
  Company Number: NVSC2019TW043890

PATIENT
  Sex: Female

DRUGS (5)
  1. FELODIPINE. [Suspect]
     Active Substance: FELODIPINE
     Indication: FOETAL EXPOSURE DURING PREGNANCY
     Dosage: 5 MG, QD
     Route: 064
  2. MYCOPHENOLATE MOFETIL. [Suspect]
     Active Substance: MYCOPHENOLATE MOFETIL
     Indication: FOETAL EXPOSURE DURING PREGNANCY
     Dosage: 1000 MG, BID
     Route: 064
  3. HYDROXYCHLOROQUINE SULFATE. [Suspect]
     Active Substance: HYDROXYCHLOROQUINE SULFATE
     Indication: FOETAL EXPOSURE DURING PREGNANCY
     Dosage: 200 MG, QD
     Route: 064
  4. IRBESARTAN. [Suspect]
     Active Substance: IRBESARTAN
     Indication: FOETAL EXPOSURE DURING PREGNANCY
     Dosage: 150 MG, QD
     Route: 064
  5. PREDNISOLONE. [Suspect]
     Active Substance: PREDNISOLONE
     Indication: FOETAL EXPOSURE DURING PREGNANCY
     Dosage: 30 MG, QD
     Route: 064

REACTIONS (7)
  - Microtia [Unknown]
  - Foetal exposure during pregnancy [Unknown]
  - Hypertelorism of orbit [Unknown]
  - Congenital anomaly [Unknown]
  - Auditory disorder [Unknown]
  - Foetal malformation [Unknown]
  - Micrognathia [Unknown]
